FAERS Safety Report 6336669-4 (Version None)
Quarter: 2009Q3

REPORT INFORMATION
  Report Type: 
  Country: None (occurrence: None)
  Receive Date: 20090901
  Receipt Date: 20090820
  Transmission Date: 20100115
  Serious: Yes (Other)
  Sender: FDA-Public Use
  Company Number: JP-PFIZER INC-2009259132

PATIENT
  Age: 40 Year

DRUGS (1)
  1. ZITHROMAC SR [Suspect]
     Dosage: 2 G, 1X/DAY
     Route: 048
     Dates: start: 20090819, end: 20090819

REACTIONS (1)
  - DIARRHOEA HAEMORRHAGIC [None]
